FAERS Safety Report 25125289 (Version 1)
Quarter: 2025Q1

REPORT INFORMATION
  Report Type: Spontaneous
  Country: ES (occurrence: ES)
  Receive Date: 20250326
  Receipt Date: 20250326
  Transmission Date: 20250408
  Serious: Yes (Life-Threatening, Hospitalization)
  Sender: NOVARTIS
  Company Number: None

PATIENT
  Age: 65 Year
  Sex: Female
  Weight: 43 kg

DRUGS (1)
  1. EXJADE [Suspect]
     Active Substance: DEFERASIROX
     Indication: Hyperferritinaemia
     Dosage: 360 MG, QD (360 MG/ D?A) 360 MG COMPRIMIDOS RECUBIERTOS CON PELICULA, 30 COMPRIMIDOS
     Route: 048
     Dates: start: 20230608, end: 20240415

REACTIONS (1)
  - Acute kidney injury [Recovering/Resolving]

NARRATIVE: CASE EVENT DATE: 20240414
